FAERS Safety Report 8618087-9 (Version None)
Quarter: 2012Q3

REPORT INFORMATION
  Report Type: 
  Country: None (occurrence: None)
  Receive Date: 20120824
  Receipt Date: 20120503
  Transmission Date: 20120928
  Serious: No
  Sender: FDA-Public Use
  Company Number: US-ASTRAZENECA-2012SE28796

PATIENT
  Sex: Male

DRUGS (1)
  1. SYMBICORT [Suspect]
     Dosage: UNKNOWN STRENGTH,TWO PUFFS, TWICE A DAY
     Route: 055
     Dates: start: 20120502

REACTIONS (5)
  - NASAL CONGESTION [None]
  - CHEST PAIN [None]
  - INSOMNIA [None]
  - DYSPNOEA [None]
  - DRUG INEFFECTIVE [None]
